FAERS Safety Report 14936745 (Version 3)
Quarter: 2018Q4

REPORT INFORMATION
  Report Type: Report from Study
  Country: FR (occurrence: FR)
  Receive Date: 20180525
  Receipt Date: 20181231
  Transmission Date: 20190204
  Serious: Yes (Hospitalization, Other)
  Sender: FDA-Public Use
  Company Number: FR-BRISTOL-MYERS SQUIBB COMPANY-BMS-2018-045967

PATIENT
  Age: 59 Year
  Sex: Male

DRUGS (1)
  1. NIVOLUMAB [Suspect]
     Active Substance: NIVOLUMAB
     Indication: RENAL CANCER
     Dosage: 1 DF, Q2WK
     Route: 065
     Dates: start: 20180209, end: 20180223

REACTIONS (5)
  - Fatigue [Recovered/Resolved]
  - Diabetic metabolic decompensation [Recovered/Resolved]
  - Hyperthyroidism [Not Recovered/Not Resolved]
  - Gastrointestinal infection [Recovered/Resolved]
  - Back pain [Not Recovered/Not Resolved]

NARRATIVE: CASE EVENT DATE: 20180309
